FAERS Safety Report 4880327-X (Version None)
Quarter: 2006Q1

REPORT INFORMATION
  Report Type: 
  Country: None (occurrence: None)
  Receive Date: 20060111
  Receipt Date: 20060106
  Transmission Date: 20060701
  Serious: Yes (Other)
  Sender: FDA-Public Use
  Company Number: PHO-2005-025

PATIENT
  Age: 55 Year
  Sex: Male

DRUGS (1)
  1. PHOTOFRIN [Suspect]
     Indication: SARCOMATOSIS
     Dosage: 2.5 MG/KG IV
     Route: 042
     Dates: start: 19970501, end: 19981201

REACTIONS (3)
  - ACUTE RESPIRATORY DISTRESS SYNDROME [None]
  - FLUID OVERLOAD [None]
  - PULMONARY EMBOLISM [None]
